FAERS Safety Report 22133164 (Version 1)
Quarter: 2023Q1

REPORT INFORMATION
  Report Type: Spontaneous
  Country: US (occurrence: None)
  Receive Date: 20230324
  Receipt Date: 20230324
  Transmission Date: 20230418
  Serious: No
  Sender: FDA-Public Use
  Company Number: 2023A046544

PATIENT
  Sex: Female
  Weight: 68 kg

DRUGS (1)
  1. BEVESPI AEROSPHERE [Suspect]
     Active Substance: FORMOTEROL FUMARATE\GLYCOPYRROLATE
     Indication: Chronic obstructive pulmonary disease
     Dosage: 9 MCG, 120 INHALATIONS, 2 INHALATIONS 2 TIMES A DAY
     Route: 058

REACTIONS (6)
  - Flushing [Unknown]
  - Product odour abnormal [Unknown]
  - Product taste abnormal [Unknown]
  - Headache [Unknown]
  - Device failure [Unknown]
  - Wrong technique in device usage process [Unknown]
